FAERS Safety Report 24984710 (Version 2)
Quarter: 2025Q1

REPORT INFORMATION
  Report Type: Spontaneous
  Country: CA (occurrence: CA)
  Receive Date: 20250219
  Receipt Date: 20250310
  Transmission Date: 20250408
  Serious: Yes (Death, Hospitalization, Other)
  Sender: CSL BEHRING
  Company Number: CA-BEH-2025195923

PATIENT
  Age: 84 Year
  Sex: Female

DRUGS (34)
  1. HUMAN IMMUNOGLOBULIN G [Suspect]
     Active Substance: HUMAN IMMUNOGLOBULIN G
     Indication: Myasthenia gravis
     Dosage: 18 G, QW
     Route: 065
  2. HUMAN IMMUNOGLOBULIN G [Suspect]
     Active Substance: HUMAN IMMUNOGLOBULIN G
     Dosage: 18 G, QW
     Route: 065
  3. HUMAN IMMUNOGLOBULIN G [Suspect]
     Active Substance: HUMAN IMMUNOGLOBULIN G
     Dosage: 18 G, QW
     Route: 058
  4. HUMAN IMMUNOGLOBULIN G [Suspect]
     Active Substance: HUMAN IMMUNOGLOBULIN G
     Dosage: 60 G, Q3W
     Route: 065
  5. HUMAN IMMUNOGLOBULIN G [Suspect]
     Active Substance: HUMAN IMMUNOGLOBULIN G
     Dosage: 15 G, QW
     Route: 058
  6. HUMAN IMMUNOGLOBULIN G [Suspect]
     Active Substance: HUMAN IMMUNOGLOBULIN G
     Route: 058
  7. HUMAN IMMUNOGLOBULIN G [Suspect]
     Active Substance: HUMAN IMMUNOGLOBULIN G
     Route: 058
  8. HUMAN IMMUNOGLOBULIN G [Suspect]
     Active Substance: HUMAN IMMUNOGLOBULIN G
     Dosage: 60 G, Q3W
     Route: 058
  9. HUMAN IMMUNOGLOBULIN G [Suspect]
     Active Substance: HUMAN IMMUNOGLOBULIN G
     Dosage: 20 G, QW
     Route: 058
  10. HUMAN IMMUNOGLOBULIN G [Suspect]
     Active Substance: HUMAN IMMUNOGLOBULIN G
     Dosage: 60 G, Q3W
     Route: 065
  11. APIXABAN [Concomitant]
     Active Substance: APIXABAN
     Dosage: 2.5 DF, BID
     Route: 065
  12. ATIVAN [Concomitant]
     Active Substance: LORAZEPAM
  13. DIGOXIN [Concomitant]
     Active Substance: DIGOXIN
     Dosage: UNK, QD
     Route: 065
  14. DIGOXIN [Concomitant]
     Active Substance: DIGOXIN
     Dosage: 62.5 ?G, QD
     Route: 065
  15. EZETIMIBE [Concomitant]
     Active Substance: EZETIMIBE
     Dosage: 10 MG, QD
     Route: 065
  16. FUROSEMIDE [Concomitant]
     Active Substance: FUROSEMIDE
     Dosage: 40 MG, QD
     Route: 048
  17. GABAPENTIN [Concomitant]
     Active Substance: GABAPENTIN
     Dosage: 200 MG, BID
     Route: 048
  18. GLYCOPYRROLATE [Concomitant]
     Active Substance: GLYCOPYRROLATE
  19. HYDROMORPHONE [Concomitant]
     Active Substance: HYDROMORPHONE
  20. INSULIN PORK [Concomitant]
     Active Substance: INSULIN PORK\INSULIN PURIFIED PORK
     Route: 065
  21. LEVOMEPROMAZINE MALEATE [Concomitant]
     Active Substance: LEVOMEPROMAZINE MALEATE
  22. LEVOTHYROXINE SODIUM [Concomitant]
     Active Substance: LEVOTHYROXINE SODIUM
     Dosage: 75 ?G, QD
     Route: 048
  23. METHADONE HYDROCHLORIDE [Concomitant]
     Active Substance: METHADONE HYDROCHLORIDE
  24. METOPROLOL [Concomitant]
     Active Substance: METOPROLOL
     Route: 048
  25. OLANZAPINE [Concomitant]
     Active Substance: OLANZAPINE
     Dosage: 3.75 MG, QD
     Route: 048
  26. PANTOPRAZOLE SODIUM [Concomitant]
     Active Substance: PANTOPRAZOLE SODIUM
     Dosage: 40 MG, QD
     Route: 048
  27. PREDNISONE [Concomitant]
     Active Substance: PREDNISONE
     Dosage: 50 MG, QD
     Route: 065
  28. PREDNISONE [Concomitant]
     Active Substance: PREDNISONE
     Dosage: 25 MG, QD
     Route: 048
  29. ROSUVASTATIN CALCIUM [Concomitant]
     Active Substance: ROSUVASTATIN CALCIUM
  30. SENNOSIDES [Concomitant]
     Active Substance: SENNOSIDES
     Dosage: 24 MG, BID
     Route: 048
  31. SEPTRA [Concomitant]
     Active Substance: SULFAMETHOXAZOLE\TRIMETHOPRIM
  32. VITAMIN B12 [Concomitant]
     Active Substance: CYANOCOBALAMIN
     Dosage: 1000 ?G, QD
     Route: 048
  33. VITAMIN B12 [Concomitant]
     Active Substance: CYANOCOBALAMIN
     Dosage: 250 ?G, QD
     Route: 048
  34. VITAMIN D3 [Concomitant]
     Active Substance: CHOLECALCIFEROL
     Dosage: 1000 IU, QD
     Route: 048

REACTIONS (24)
  - Death [Fatal]
  - Asthenia [Fatal]
  - Blood pressure increased [Fatal]
  - Confusional state [Fatal]
  - Dementia [Fatal]
  - Diplopia [Fatal]
  - Fall [Fatal]
  - Fatigue [Fatal]
  - Food refusal [Fatal]
  - Gait inability [Fatal]
  - Headache [Fatal]
  - Hypersomnia [Fatal]
  - Hypophagia [Fatal]
  - Incorrect dose administered [Fatal]
  - Incorrect drug administration rate [Fatal]
  - Injection site bruising [Fatal]
  - Off label use [Fatal]
  - Pain [Fatal]
  - Poor venous access [Fatal]
  - Skin cancer [Fatal]
  - Somnolence [Fatal]
  - Therapy interrupted [Fatal]
  - Trigeminal neuralgia [Fatal]
  - Off label use [Unknown]
